FAERS Safety Report 7740072-X (Version None)
Quarter: 2011Q3

REPORT INFORMATION
  Report Type: 
  Country: None (occurrence: None)
  Receive Date: 20110909
  Receipt Date: 20110829
  Transmission Date: 20111222
  Serious: Yes (Hospitalization)
  Sender: FDA-Public Use
  Company Number: PL-NOVOPROD-328129

PATIENT

DRUGS (3)
  1. LIRAGLUTIDE FLEXPEN [Suspect]
     Indication: TYPE 2 DIABETES MELLITUS
     Dosage: 1.8 MG, QD
     Dates: start: 20110428, end: 20110502
  2. LIRAGLUTIDE FLEXPEN [Suspect]
     Dosage: 1.8 MG, QD
     Dates: start: 20110506
  3. METFORMAX [Concomitant]
     Dosage: 850 MG, TID

REACTIONS (2)
  - PERCUTANEOUS CORONARY INTERVENTION [None]
  - ANGINA UNSTABLE [None]
